FAERS Safety Report 25111178 (Version 4)
Quarter: 2025Q2

REPORT INFORMATION
  Report Type: Report from Study
  Country: US (occurrence: US)
  Receive Date: 20250324
  Receipt Date: 20250616
  Transmission Date: 20250717
  Serious: Yes (Hospitalization, Other)
  Sender: NOVARTIS
  Company Number: US-002147023-NVSC2025US047514

PATIENT
  Sex: Female

DRUGS (1)
  1. KESIMPTA [Suspect]
     Active Substance: OFATUMUMAB
     Indication: Product used for unknown indication
     Route: 065

REACTIONS (6)
  - Cerebrospinal fluid leakage [Unknown]
  - Subdural hygroma [Unknown]
  - Abdominal sepsis [Unknown]
  - Malaise [Unknown]
  - Pain [Unknown]
  - Decreased immune responsiveness [Unknown]
